FAERS Safety Report 8985389 (Version 1)
Quarter: 2012Q4

REPORT INFORMATION
  Report Type: 
  Country: NL (occurrence: NL)
  Receive Date: 20121226
  Receipt Date: 20121226
  Transmission Date: 20130627
  Serious: Yes (Other)
  Sender: FDA-Public Use
  Company Number: NL-PFIZER INC-2012323254

PATIENT
  Age: 56 Year
  Sex: Female

DRUGS (3)
  1. EPIRUBICIN HCL [Suspect]
     Indication: BREAST CANCER
     Dosage: Approximately 200ml (140 mg)
  2. FLUOROURACIL [Suspect]
     Indication: BREAST CANCER
     Dosage: 1150 mg, cyclic
  3. CYCLOPHOSPHAMIDE [Suspect]
     Indication: BREAST CANCER
     Dosage: 1150 mg, cyclic

REACTIONS (5)
  - Extravasation [Recovering/Resolving]
  - Pleural effusion [Recovering/Resolving]
  - Empyema [Recovering/Resolving]
  - Chest pain [Recovering/Resolving]
  - Abdominal pain [Recovering/Resolving]
